FAERS Safety Report 24184295 (Version 1)
Quarter: 2024Q3

REPORT INFORMATION
  Report Type: Spontaneous
  Country: US (occurrence: None)
  Receive Date: 20240807
  Receipt Date: 20240807
  Transmission Date: 20241017
  Serious: Yes (Death)
  Sender: Public
  Company Number: None

PATIENT
  Age: 54 Year
  Sex: Female

DRUGS (2)
  1. AUGTYRO [Suspect]
     Active Substance: REPOTRECTINIB
     Route: 048
     Dates: start: 202403
  2. CABOMEYTX [Concomitant]
     Dosage: FREQUENCY : TWICE A DAY;?
     Route: 048
     Dates: start: 202403

REACTIONS (1)
  - Death [None]

NARRATIVE: CASE EVENT DATE: 20240716
